FAERS Safety Report 6150133-7 (Version None)
Quarter: 2009Q2

REPORT INFORMATION
  Report Type: 
  Country: None (occurrence: None)
  Receive Date: 20090407
  Receipt Date: 20090325
  Transmission Date: 20091009
  Serious: Yes (Disabling)
  Sender: FDA-Public Use
  Company Number: 230164K09BRA

PATIENT
  Age: 37 Year
  Sex: Female

DRUGS (3)
  1. REBIF [Suspect]
     Indication: MULTIPLE SCLEROSIS
     Dosage: 44 MCG, 3 IN 1 WEEKS
     Dates: start: 20080625
  2. CINETOINA (PHENYTOIN /00017401/) [Concomitant]
  3. BALCOR (DILTIAZEM HYDROCHLORIDE) [Concomitant]

REACTIONS (5)
  - BLINDNESS UNILATERAL [None]
  - CONTUSION [None]
  - HYPOAESTHESIA [None]
  - MUSCULAR WEAKNESS [None]
  - PAIN [None]
